FAERS Safety Report 14110412 (Version 1)
Quarter: 2017Q4

REPORT INFORMATION
  Report Type: Spontaneous
  Country: US (occurrence: None)
  Receive Date: 20171019
  Receipt Date: 20171019
  Transmission Date: 20180321
  Serious: No
  Sender: FDA-Public Use
  Company Number: None

PATIENT
  Sex: Female
  Weight: 47.63 kg

DRUGS (2)
  1. NEXPLANON [Suspect]
     Active Substance: ETONOGESTREL
     Dates: start: 20170601
  2. CORTISONE CREAM [Concomitant]

REACTIONS (2)
  - Implant site urticaria [None]
  - Product substitution issue [None]

NARRATIVE: CASE EVENT DATE: 20170605
